FAERS Safety Report 19381864 (Version 1)
Quarter: 2021Q2

REPORT INFORMATION
  Report Type: Spontaneous
  Country: US (occurrence: US)
  Receive Date: 20210606
  Receipt Date: 20210606
  Transmission Date: 20210717
  Serious: Yes (Other)
  Sender: FDA-Public Use
  Company Number: None

PATIENT
  Age: 32 Year
  Sex: Female
  Weight: 51.75 kg

DRUGS (5)
  1. NEXIUM [Concomitant]
     Active Substance: ESOMEPRAZOLE MAGNESIUM
  2. ADDYI [Concomitant]
     Active Substance: FLIBANSERIN
  3. VITAMIN B12 [Concomitant]
     Active Substance: CYANOCOBALAMIN
  4. BIOTIN [Concomitant]
     Active Substance: BIOTIN
  5. ELURYNG [Suspect]
     Active Substance: ETHINYL ESTRADIOL\ETONOGESTREL
     Indication: CONTRACEPTION
     Route: 067
     Dates: start: 20210411, end: 20210606

REACTIONS (6)
  - Intermenstrual bleeding [None]
  - Dysmenorrhoea [None]
  - Product substitution issue [None]
  - Migraine [None]
  - Complication associated with device [None]
  - Acne cystic [None]

NARRATIVE: CASE EVENT DATE: 20210511
